FAERS Safety Report 6325074-2 (Version None)
Quarter: 2009Q3

REPORT INFORMATION
  Report Type: 
  Country: None (occurrence: None)
  Receive Date: 20090824
  Receipt Date: 20090721
  Transmission Date: 20100115
  Serious: No
  Sender: FDA-Public Use
  Company Number: US-ABBOTT-09P-163-0584667-00

PATIENT
  Sex: Female
  Weight: 90.8 kg

DRUGS (16)
  1. NIASPAN [Suspect]
     Indication: DYSLIPIDAEMIA
     Route: 048
     Dates: start: 20090615
  2. ADALIMUMAB [Concomitant]
     Indication: RHEUMATOID ARTHRITIS
     Route: 058
  3. GLUCOPHAGE [Concomitant]
     Indication: DIABETES MELLITUS
     Route: 048
  4. TRILIPIX [Concomitant]
     Indication: BLOOD CHOLESTEROL
     Route: 048
  5. ZOCOR [Concomitant]
     Indication: BLOOD CHOLESTEROL
     Route: 048
  6. ULORIC [Concomitant]
     Indication: GOUT
     Route: 048
  7. PROBENECID [Concomitant]
     Indication: GOUT
     Route: 048
  8. CLONAZEPAM [Concomitant]
     Indication: ANXIOLYTIC THERAPY
     Route: 048
  9. AMITRIPTYLINE [Concomitant]
     Indication: DEPRESSION
     Route: 048
  10. CLONIDINE [Concomitant]
     Indication: BLOOD PRESSURE
     Route: 048
  11. TOPROL-XL [Concomitant]
     Indication: BLOOD PRESSURE
     Route: 048
  12. LOTENSIN HCT [Concomitant]
     Indication: BLOOD PRESSURE
     Route: 048
  13. NORVASC [Concomitant]
     Indication: BLOOD PRESSURE
     Route: 048
  14. ASPIRIN [Concomitant]
     Indication: FLUSHING
     Route: 048
  15. ULTRAM [Concomitant]
     Indication: ARTHRALGIA
     Dosage: AS NEEDED-ALT W/DARVOCET N 100
     Route: 048
  16. DARVOCET-N 100 [Concomitant]
     Indication: ARTHRALGIA
     Dosage: ALT W/ULTRAM
     Route: 048

REACTIONS (1)
  - FLUSHING [None]
